FAERS Safety Report 9715592 (Version 1)
Quarter: 2013Q4

REPORT INFORMATION
  Report Type: Spontaneous
  Country: DE (occurrence: DE)
  Receive Date: 20131127
  Receipt Date: 20131127
  Transmission Date: 20140711
  Serious: Yes (Other)
  Sender: FDA-Public Use
  Company Number: DE-DRREDDYS-GER/GER/13/0035638

PATIENT
  Sex: Female
  Weight: 58 kg

DRUGS (3)
  1. FLUOXETIN BETA 40, TABLETTEN [Suspect]
     Indication: PRODUCT USED FOR UNKNOWN INDICATION
     Route: 048
     Dates: start: 20131115, end: 20131115
  2. FLUOXETIN BETA 40, TABLETTEN [Suspect]
     Route: 048
  3. ALPRAZOLAM 0.25 MG (MYLAN A) [Suspect]
     Indication: PRODUCT USED FOR UNKNOWN INDICATION
     Route: 048
     Dates: start: 20131115, end: 20131115

REACTIONS (4)
  - Suicide attempt [Unknown]
  - Somnolence [Unknown]
  - Vomiting [Unknown]
  - Intentional overdose [Unknown]
